FAERS Safety Report 9867836 (Version 1)
Quarter: 2014Q1

REPORT INFORMATION
  Report Type: Spontaneous
  Country: TW (occurrence: TW)
  Receive Date: 20140204
  Receipt Date: 20140204
  Transmission Date: 20141002
  Serious: Yes (Hospitalization)
  Sender: FDA-Public Use
  Company Number: PHHY2014TW009370

PATIENT
  Age: 31 Year
  Sex: Female

DRUGS (7)
  1. CICLOSPORIN [Suspect]
     Indication: IMMUNOSUPPRESSION
     Dosage: 360 MG, PER DAY
  2. CICLOSPORIN [Suspect]
     Dosage: 260 UNK, PER DAY
  3. CICLOSPORIN [Suspect]
     Dosage: 280 MG, PER DAY
  4. PREDNISOLONE [Suspect]
     Indication: IMMUNOSUPPRESSION
     Dosage: 15 MG, PER DAY
  5. PREDNISOLONE [Suspect]
     Dosage: 10 MG, PER DAY
  6. RITODRINE [Suspect]
     Indication: THREATENED LABOUR
  7. PARLODEL [Concomitant]

REACTIONS (6)
  - Premature rupture of membranes [Unknown]
  - Premature labour [Unknown]
  - Oedema peripheral [Unknown]
  - Blood pressure increased [Unknown]
  - Immunosuppressant drug level increased [Unknown]
  - Exposure during pregnancy [Unknown]
